FAERS Safety Report 6030197-1 (Version None)
Quarter: 2009Q1

REPORT INFORMATION
  Report Type: 
  Country: None (occurrence: None)
  Receive Date: 20090107
  Receipt Date: 20080819
  Transmission Date: 20090719
  Serious: No
  Sender: FDA-Public Use
  Company Number: US-BAYER-200813453BCC

PATIENT
  Age: 83 Year
  Sex: Female
  Weight: 104 kg

DRUGS (17)
  1. ALEVE (CAPLET) [Suspect]
     Indication: BACK PAIN
     Dosage: TOTAL DAILY DOSE: 440 MG  UNIT DOSE: 220 MG
     Route: 048
     Dates: start: 20080701, end: 20080818
  2. ASPIRIN [Concomitant]
     Route: 048
     Dates: start: 20000101
  3. COZAAR [Concomitant]
  4. PLAVIX [Concomitant]
  5. LIPITOR [Concomitant]
  6. LASIX [Concomitant]
  7. NEXIUM [Concomitant]
  8. POTASSIUM CHLORIDE [Concomitant]
  9. DARVOCET [Concomitant]
  10. FOSAMAX [Concomitant]
  11. LANTUS [Concomitant]
  12. HUMALOG [Concomitant]
  13. VITAMIN D [Concomitant]
     Route: 048
  14. FOLIC ACID [Concomitant]
  15. ASCORBIC ACID [Concomitant]
  16. OSCAL [Concomitant]
  17. MULTI-VITAMIN [Concomitant]

REACTIONS (2)
  - BLEEDING TIME PROLONGED [None]
  - CONTUSION [None]
